FAERS Safety Report 17507917 (Version 2)
Quarter: 2020Q1

REPORT INFORMATION
  Report Type: Spontaneous
  Country: JP (occurrence: JP)
  Receive Date: 20200306
  Receipt Date: 20200327
  Transmission Date: 20200409
  Serious: Yes (Hospitalization)
  Sender: FDA-Public Use
  Company Number: NVSJ2020JP002720

PATIENT
  Age: 6 Month
  Sex: Female

DRUGS (9)
  1. FAMOTIDINE. [Concomitant]
     Active Substance: FAMOTIDINE
     Indication: PRODUCT USED FOR UNKNOWN INDICATION
     Dosage: 3 MG
     Route: 065
     Dates: start: 20200123, end: 20200304
  2. ASPIRIN. [Concomitant]
     Active Substance: ASPIRIN
     Dosage: 180 MG
     Route: 065
     Dates: start: 20200215, end: 20200218
  3. NEORAL [Suspect]
     Active Substance: CYCLOSPORINE
     Dosage: 0.1 ML, BID
     Route: 048
  4. NEORAL [Suspect]
     Active Substance: CYCLOSPORINE
     Dosage: 40 MG
     Route: 048
     Dates: start: 20200215, end: 20200228
  5. ASPIRIN. [Concomitant]
     Active Substance: ASPIRIN
     Dosage: 30 MG
     Route: 065
     Dates: start: 20200219
  6. NEORAL [Suspect]
     Active Substance: CYCLOSPORINE
     Indication: KAWASAKI^S DISEASE
     Dosage: 26 MG
     Route: 048
     Dates: start: 20200125
  7. NEORAL [Suspect]
     Active Substance: CYCLOSPORINE
     Dosage: 0.1 ML, BID
     Route: 048
  8. ASPIRIN. [Concomitant]
     Active Substance: ASPIRIN
     Dosage: 35 MG
     Route: 065
     Dates: start: 20200131, end: 20200214
  9. ASPIRIN. [Concomitant]
     Active Substance: ASPIRIN
     Indication: PRODUCT USED FOR UNKNOWN INDICATION
     Dosage: 195 MG
     Route: 065
     Dates: start: 20200123, end: 20200130

REACTIONS (4)
  - Product use issue [Recovered/Resolved]
  - Drug level fluctuating [Unknown]
  - Product use in unapproved indication [Unknown]
  - Kawasaki^s disease [Recovered/Resolved]

NARRATIVE: CASE EVENT DATE: 20200212
